FAERS Safety Report 9592871 (Version 1)
Quarter: 2013Q4

REPORT INFORMATION
  Report Type: Spontaneous
  Country: FR (occurrence: None)
  Receive Date: 20131002
  Receipt Date: 20131002
  Transmission Date: 20140711
  Serious: Yes (Death, Other)
  Sender: FDA-Public Use
  Company Number: 2013P1019751

PATIENT
  Age: 89 Year
  Sex: Female

DRUGS (11)
  1. KAYEXALATE [Suspect]
     Indication: HYPERKALAEMIA
     Route: 055
     Dates: start: 201212
  2. DOLIPRAN (PARACETAMOL) [Concomitant]
  3. CORTANCYL (PREDNISONE) [Concomitant]
  4. AMOXICILLIN/CLAVULANIC ACID [Concomitant]
  5. CIPROFLOXACIN [Concomitant]
  6. PIPERACILLIN/TAZOBACTAM [Concomitant]
  7. CILASTATIN/IMIPENEM [Concomitant]
  8. VALACICLOVIR [Concomitant]
  9. EUPANTOL (PANTOPRAZOLE) [Concomitant]
  10. MIANSERINE [Concomitant]
  11. SERESTA (OXAZEPAM) [Concomitant]

REACTIONS (1)
  - Bicytopenia [None]
